FAERS Safety Report 25544262 (Version 2)
Quarter: 2025Q4

REPORT INFORMATION
  Report Type: Spontaneous
  Country: TR (occurrence: TR)
  Receive Date: 20250711
  Receipt Date: 20251014
  Transmission Date: 20260118
  Serious: Yes (Other)
  Sender: REGENERON
  Company Number: TR-BAYER-2025A089827

PATIENT
  Age: 67 Year
  Sex: Female

DRUGS (1)
  1. EYLEA [Suspect]
     Active Substance: AFLIBERCEPT
     Indication: Diabetic retinal oedema
     Dosage: 2 MG, LEFT, 40 MG/ML
     Route: 031
     Dates: start: 20250630

REACTIONS (5)
  - Vitrectomy [Unknown]
  - Visual impairment [Recovered/Resolved]
  - Vitreous haze [Recovered/Resolved]
  - Eye pain [Recovered/Resolved]
  - Visual acuity reduced [Recovered/Resolved]

NARRATIVE: CASE EVENT DATE: 20250630
